FAERS Safety Report 10435977 (Version 1)
Quarter: 2014Q3

REPORT INFORMATION
  Report Type: Spontaneous
  Country: US (occurrence: US)
  Receive Date: 20140908
  Receipt Date: 20140908
  Transmission Date: 20150326
  Serious: No
  Sender: FDA-Public Use
  Company Number: US-GLAXOSMITHKLINE-A1079978A

PATIENT
  Age: 73 Year
  Sex: Female

DRUGS (2)
  1. THYROID MEDICATION [Concomitant]
     Active Substance: UNSPECIFIED INGREDIENT
  2. BREO ELLIPTA [Suspect]
     Active Substance: FLUTICASONE FUROATE\VILANTEROL TRIFENATATE
     Indication: ASTHMA
     Dosage: 1PUFF PER DAY
     Route: 055
     Dates: start: 20140702

REACTIONS (9)
  - Hypertension [Unknown]
  - Feeling abnormal [Unknown]
  - Asthenia [Unknown]
  - Oropharyngeal pain [Unknown]
  - Nervousness [Unknown]
  - Hyperhidrosis [Unknown]
  - Palpitations [Unknown]
  - Dry throat [Unknown]
  - Tremor [Unknown]

NARRATIVE: CASE EVENT DATE: 20140702
